FAERS Safety Report 24641501 (Version 1)
Quarter: 2024Q4

REPORT INFORMATION
  Report Type: Spontaneous
  Country: SE (occurrence: SE)
  Receive Date: 20241120
  Receipt Date: 20241120
  Transmission Date: 20250115
  Serious: Yes (Other)
  Sender: STRIDES
  Company Number: SE-STRIDES ARCOLAB LIMITED-2024SP014988

PATIENT
  Age: 46 Year
  Sex: Female

DRUGS (1)
  1. SERTRALINE [Suspect]
     Active Substance: SERTRALINE HYDROCHLORIDE
     Indication: Product used for unknown indication
     Dosage: UNK
     Route: 065

REACTIONS (4)
  - Multiple acyl-coenzyme A dehydrogenase deficiency [Recovered/Resolved]
  - Dyspnoea [Recovered/Resolved]
  - Lipid metabolism disorder [Recovered/Resolved]
  - Myopathy [Recovered/Resolved]
